FAERS Safety Report 9602820 (Version 2)
Quarter: 2013Q4

REPORT INFORMATION
  Report Type: Report from Study
  Country: US (occurrence: US)
  Receive Date: 20131007
  Receipt Date: 20131007
  Transmission Date: 20140711
  Serious: Yes (Hospitalization, Other)
  Sender: FDA-Public Use
  Company Number: US-ABBVIE-13P-163-1090779-00

PATIENT
  Age: 69 Year
  Sex: Female
  Weight: 56.75 kg

DRUGS (8)
  1. HUMIRA [Suspect]
     Indication: ANKYLOSING SPONDYLITIS
     Dates: start: 2010, end: 201303
  2. HUMIRA [Suspect]
     Indication: CROHN^S DISEASE
     Dates: start: 201305
  3. HUMIRA [Suspect]
     Indication: RHEUMATOID ARTHRITIS
  4. ULTRAM [Concomitant]
     Indication: ANKYLOSING SPONDYLITIS
  5. MOBIC [Concomitant]
     Indication: ANKYLOSING SPONDYLITIS
  6. HYDROCODONE [Concomitant]
     Indication: ANKYLOSING SPONDYLITIS
     Dosage: 5/500
  7. SKELAXIN [Concomitant]
     Indication: ANKYLOSING SPONDYLITIS
  8. LIDODERM [Concomitant]
     Indication: ANKYLOSING SPONDYLITIS
     Dosage: PATCHES

REACTIONS (8)
  - Spinal column stenosis [Unknown]
  - Fall [Unknown]
  - Injection site pain [Not Recovered/Not Resolved]
  - Drug dose omission [Unknown]
  - Arthralgia [Not Recovered/Not Resolved]
  - Cerebral haematoma [Recovered/Resolved]
  - Endodontic procedure [Unknown]
  - Back pain [Unknown]
